FAERS Safety Report 5604534-3 (Version None)
Quarter: 2008Q1

REPORT INFORMATION
  Report Type: 
  Country: None (occurrence: None)
  Receive Date: 20080128
  Receipt Date: 20080116
  Transmission Date: 20080703
  Serious: Yes (Death, Hospitalization)
  Sender: FDA-Public Use
  Company Number: JP-ELI_LILLY_AND_COMPANY-JP200712001386

PATIENT
  Sex: Female
  Weight: 46 kg

DRUGS (17)
  1. GEMZAR [Suspect]
     Indication: GALLBLADDER CANCER STAGE IV
     Dosage: 1000 MG/M2, OTHER
     Route: 042
     Dates: start: 20050107, end: 20050525
  2. CISPLATIN [Concomitant]
     Indication: GALLBLADDER CANCER STAGE IV
     Dosage: 70 MG/M2, OTHER
     Route: 042
     Dates: start: 20050107, end: 20050525
  3. EVISTA [Concomitant]
     Dosage: 60 MG, DAILY (1/D)
     Route: 048
     Dates: start: 20050107
  4. NORVASK [Concomitant]
     Dosage: 2.5 MG, DAILY (1/D)
     Route: 048
     Dates: start: 20050107
  5. LIPITOR [Concomitant]
     Dosage: 10 MG, DAILY (1/D)
     Route: 048
     Dates: start: 20050107
  6. METOCLOPRAMIDE HCL [Concomitant]
     Dosage: 5 MG, AS NEEDED
     Route: 048
     Dates: start: 20050107
  7. KYTRIL [Concomitant]
     Dosage: 3 MG, UNK
     Route: 042
     Dates: start: 20050107, end: 20050525
  8. DECADRON #1 [Concomitant]
     Dosage: 20 MG, UNK
     Route: 042
     Dates: start: 20050107, end: 20050525
  9. DECADRON #1 [Concomitant]
     Dosage: 8 MG, UNK
     Route: 042
     Dates: start: 20050108, end: 20050420
  10. MEDICON [Concomitant]
     Dosage: 15 MG, AS NEEDED
     Route: 048
     Dates: start: 20050111
  11. PL GRAN. [Concomitant]
     Dosage: 1 G, 3/D
     Route: 048
     Dates: start: 20050111, end: 20050118
  12. GLYSENNID [Concomitant]
     Dosage: 12 MG, AS NEEDED
     Route: 048
     Dates: start: 20050111
  13. SELBEX [Concomitant]
     Dosage: 50 MG, 3/D
     Route: 048
     Dates: start: 20050114
  14. AMOBAN [Concomitant]
     Dosage: 7.5MG, AS NEEDED
     Route: 048
     Dates: start: 20050114
  15. LOXONIN [Concomitant]
     Dosage: 60 MG, AS NEEDED
     Route: 048
     Dates: start: 20050207
  16. KYTRIL [Concomitant]
     Dosage: 2 MG, DAILY (1/D)
     Route: 048
     Dates: start: 20050310, end: 20050530
  17. MAGLAX [Concomitant]
     Dosage: 250 MG, 3/D
     Route: 048
     Dates: start: 20050323

REACTIONS (9)
  - ANOREXIA [None]
  - BLOOD CREATININE INCREASED [None]
  - DEATH [None]
  - DEHYDRATION [None]
  - HAEMOGLOBIN DECREASED [None]
  - HYPONATRAEMIA [None]
  - NAUSEA [None]
  - NEUTROPHIL COUNT DECREASED [None]
  - VOMITING [None]
